FAERS Safety Report 14518037 (Version 1)
Quarter: 2018Q1

REPORT INFORMATION
  Report Type: Spontaneous
  Country: FR (occurrence: FR)
  Receive Date: 20180212
  Receipt Date: 20180212
  Transmission Date: 20180509
  Serious: Yes (Life-Threatening)
  Sender: FDA-Public Use
  Company Number: FR-TEVA-2018-FR-854895

PATIENT
  Age: 66 Year
  Sex: Female
  Weight: 73.1 kg

DRUGS (4)
  1. LOVENOX 4 000 UI ANTI-XA/0,4 ML, SOLUTION INJECTABLE EN CARTOUCHE [Concomitant]
  2. ESIDREX [Suspect]
     Active Substance: HYDROCHLOROTHIAZIDE
     Indication: HYPERTENSION
     Route: 054
     Dates: start: 201710
  3. RAMIPRIL. [Suspect]
     Active Substance: RAMIPRIL
     Indication: HYPERTENSION
     Route: 048
     Dates: start: 201709
  4. LOXEN L P [Concomitant]
     Active Substance: NICARDIPINE HYDROCHLORIDE

REACTIONS (2)
  - Hypokalaemia [Recovered/Resolved]
  - Torsade de pointes [Recovered/Resolved]

NARRATIVE: CASE EVENT DATE: 20171108
